FAERS Safety Report 19631177 (Version 3)
Quarter: 2021Q3

REPORT INFORMATION
  Report Type: Spontaneous
  Country: IN (occurrence: IN)
  Receive Date: 20210728
  Receipt Date: 20210901
  Transmission Date: 20211014
  Serious: Yes (Other)
  Sender: FDA-Public Use
  Company Number: IN-PFIZER INC-2017448479

PATIENT
  Age: 53 Year
  Sex: Female
  Weight: 66 kg

DRUGS (5)
  1. FEMPRO [Concomitant]
     Active Substance: LETROZOLE
     Dosage: 2.5 MG, 1X/DAY
  2. PALBACE [Suspect]
     Active Substance: PALBOCICLIB
     Indication: BREAST CANCER METASTATIC
     Dosage: 125 MG, CYCLIC (ONCE DAILY D1?21 EVERY 28 DAYS)
     Route: 048
     Dates: start: 20170908, end: 20201204
  3. EVEROLIMUS. [Concomitant]
     Active Substance: EVEROLIMUS
     Dosage: 5 MG, OD
  4. EXEMESTANE. [Concomitant]
     Active Substance: EXEMESTANE
     Dosage: 25 MG, 1X/DAY
  5. SHELCAL HD [Concomitant]
     Active Substance: CALCIUM CARBONATE\CHOLECALCIFEROL
     Dosage: UNK, 1X/DAY

REACTIONS (26)
  - Cough [Unknown]
  - Cutaneous calcification [Unknown]
  - Ulcer [Unknown]
  - Oedema peripheral [Unknown]
  - Aspartate aminotransferase increased [Unknown]
  - Weight decreased [Unknown]
  - Neoplasm progression [Unknown]
  - White blood cell count decreased [Unknown]
  - Platelet count decreased [Unknown]
  - Insomnia [Unknown]
  - Peripheral swelling [Unknown]
  - Cellulitis [Unknown]
  - Fungal infection [Unknown]
  - Lymphadenopathy [Unknown]
  - Pulmonary fibrosis [Recovering/Resolving]
  - Blood pressure increased [Unknown]
  - Lymphoedema [Unknown]
  - Panic reaction [Unknown]
  - Erythema [Unknown]
  - Discharge [Unknown]
  - Positron emission tomogram abnormal [Unknown]
  - Dyspnoea [Recovering/Resolving]
  - Lymphangitis [Unknown]
  - Pruritus [Unknown]
  - Malaise [Unknown]
  - Pain [Unknown]

NARRATIVE: CASE EVENT DATE: 2017
